FAERS Safety Report 10042745 (Version 1)
Quarter: 2014Q1

REPORT INFORMATION
  Report Type: Spontaneous
  Country: GB (occurrence: GB)
  Receive Date: 20140327
  Receipt Date: 20140327
  Transmission Date: 20141002
  Serious: Yes (Other)
  Sender: FDA-Public Use
  Company Number: PHHY2014GB035410

PATIENT
  Age: 27 Year
  Sex: Male

DRUGS (2)
  1. PARACETAMOL [Suspect]
     Dosage: 8 G, UNK
     Route: 048
  2. ALCOHOL [Concomitant]

REACTIONS (5)
  - Hepatic encephalopathy [Unknown]
  - Confusional state [Unknown]
  - Liver function test abnormal [Unknown]
  - Hepatitis E virus test positive [Unknown]
  - Renal failure acute [Unknown]
